FAERS Safety Report 13693977 (Version 1)
Quarter: 2017Q2

REPORT INFORMATION
  Report Type: Spontaneous
  Country: US (occurrence: US)
  Receive Date: 20170627
  Receipt Date: 20170627
  Transmission Date: 20170830
  Serious: No
  Sender: FDA-Public Use
  Company Number: None

PATIENT

DRUGS (1)
  1. PRILOSEC [Suspect]
     Active Substance: OMEPRAZOLE MAGNESIUM

REACTIONS (8)
  - Food allergy [None]
  - Irritable bowel syndrome [None]
  - Liver injury [None]
  - Inflammation [None]
  - Malnutrition [None]
  - Depression [None]
  - Fructose intolerance [None]
  - Lactose intolerance [None]
